FAERS Safety Report 11391036 (Version 1)
Quarter: 2015Q3

REPORT INFORMATION
  Report Type: Spontaneous
  Country: DE (occurrence: None)
  Receive Date: 20150813
  Receipt Date: 20150813
  Transmission Date: 20151125
  Serious: Yes (Life-Threatening, Hospitalization, Other)
  Sender: FDA-Public Use
  Company Number: 2015RR-100973

PATIENT
  Age: 58 Year
  Sex: Male

DRUGS (1)
  1. CEFUROX BASICS 500 MG TABLETTEN (CEFUROXIME) TABLET, 500 MG [Suspect]
     Active Substance: CEFUROXIME
     Indication: SINUSITIS
     Dosage: SINGLE
     Route: 048
     Dates: start: 20150720

REACTIONS (1)
  - Circulatory collapse [None]

NARRATIVE: CASE EVENT DATE: 20150720
